FAERS Safety Report 6770791-3 (Version None)
Quarter: 2010Q2

REPORT INFORMATION
  Report Type: 
  Country: None (occurrence: None)
  Receive Date: 20100520
  Receipt Date: 20090925
  Transmission Date: 20101027
  Serious: Yes (Other)
  Sender: FDA-Public Use
  Company Number: 2004232269US

PATIENT
  Age: 59 Year
  Sex: Female
  Weight: 75 kg

DRUGS (10)
  1. PROVERA [Suspect]
     Indication: HORMONE REPLACEMENT THERAPY
     Dosage: 5 MG, ORAL ; 5 MG, ORAL
     Route: 048
     Dates: start: 19930401, end: 19960301
  2. PROVERA [Suspect]
     Indication: HORMONE REPLACEMENT THERAPY
     Dosage: 5 MG, ORAL ; 5 MG, ORAL
     Route: 048
     Dates: start: 19900101, end: 20021101
  3. MEDROXYPROGESTERONE ACETATE [Suspect]
     Indication: HORMONE REPLACEMENT THERAPY
     Dosage: 10 MG ORAL
     Route: 048
     Dates: start: 19921111, end: 19921201
  4. PREMARIN [Suspect]
     Indication: HORMONE REPLACEMENT THERAPY
     Dosage: 0.625 MG PILL, ORAL ; 0.625 MG PILL, ORAL
     Route: 048
     Dates: start: 19900201, end: 19951001
  5. PREMARIN [Suspect]
     Indication: HORMONE REPLACEMENT THERAPY
     Dosage: 0.625 MG PILL, ORAL ; 0.625 MG PILL, ORAL
     Route: 048
     Dates: start: 20000601, end: 20010501
  6. PREMPRO [Suspect]
     Indication: HORMONE REPLACEMENT THERAPY
     Dosage: 0.625/2.5MG
     Dates: start: 19970401, end: 20000601
  7. MEDROXYPROGESTERONE [Suspect]
     Indication: HORMONE REPLACEMENT THERAPY
     Dosage: 10 MG
     Dates: start: 19921111, end: 19921201
  8. ESTRACE [Suspect]
     Indication: HORMONE REPLACEMENT THERAPY
     Dosage: 0.5 MG
     Dates: start: 19951001, end: 19960301
  9. CONJUGATED ESTROGENS [Suspect]
     Indication: HORMONE REPLACEMENT THERAPY
     Dates: start: 19910101, end: 19920101
  10. CONJUGATED ESTROGENS [Suspect]
     Indication: HORMONE REPLACEMENT THERAPY
     Dates: start: 19960101

REACTIONS (1)
  - BREAST CANCER FEMALE [None]
